FAERS Safety Report 7551784-5 (Version None)
Quarter: 2011Q2

REPORT INFORMATION
  Report Type: 
  Country: None (occurrence: None)
  Receive Date: 20110616
  Receipt Date: 20110607
  Transmission Date: 20111010
  Serious: Yes (Hospitalization)
  Sender: FDA-Public Use
  Company Number: B0725355A

PATIENT
  Sex: Female
  Weight: 49 kg

DRUGS (20)
  1. CYCLOPHOSPHAMIDE [Suspect]
     Indication: CORD BLOOD TRANSPLANT THERAPY
     Dosage: 500MG PER DAY
     Dates: start: 20031206, end: 20031206
  2. LEVOFLOXACIN [Concomitant]
     Route: 048
     Dates: end: 20040107
  3. ALLOPURINOL [Concomitant]
     Route: 048
     Dates: end: 20031208
  4. GASLON N [Concomitant]
     Route: 048
     Dates: end: 20040225
  5. LANSOPRAZOLE [Concomitant]
     Route: 048
     Dates: end: 20040114
  6. FLUDARA [Suspect]
     Indication: CORD BLOOD TRANSPLANT THERAPY
     Dosage: 30MGM2 PER DAY
     Route: 042
     Dates: start: 20031202, end: 20031206
  7. VICCLOX [Concomitant]
     Route: 048
     Dates: end: 20040114
  8. METHOTREXATE [Concomitant]
     Dosage: 5MG PER DAY
     Route: 065
     Dates: start: 20031216
  9. HUSTAZOL [Concomitant]
     Route: 048
     Dates: end: 20040225
  10. ALKERAN [Suspect]
     Indication: CORD BLOOD TRANSPLANT THERAPY
     Dosage: 150MG PER DAY
     Route: 042
     Dates: start: 20031207, end: 20031207
  11. METHOTREXATE [Concomitant]
     Dosage: 5MG PER DAY
     Route: 065
     Dates: start: 20031213
  12. DOXORUBICIN HYDROCHLORIDE [Concomitant]
     Indication: CORD BLOOD TRANSPLANT THERAPY
     Dosage: 40MG PER DAY
     Route: 042
     Dates: start: 20031206, end: 20031206
  13. DIFLUCAN [Concomitant]
     Route: 048
     Dates: end: 20040225
  14. CYCLOSPORINE [Concomitant]
     Indication: IMMUNOSUPPRESSION
     Dosage: 150MG PER DAY
     Route: 065
     Dates: start: 20031207, end: 20040104
  15. URSO 250 [Concomitant]
     Route: 048
     Dates: end: 20040114
  16. KYTRIL [Concomitant]
     Dates: start: 20031202, end: 20031210
  17. GANCICLOVIR [Concomitant]
     Route: 042
     Dates: start: 20031202, end: 20031208
  18. ISEPAMICIN [Suspect]
     Dosage: 400MG PER DAY
     Dates: start: 20031222, end: 20031231
  19. METHOTREXATE [Concomitant]
     Indication: IMMUNOSUPPRESSION
     Dosage: 7MG PER DAY
     Route: 065
     Dates: start: 20031211
  20. TIENAM [Concomitant]
     Route: 042
     Dates: start: 20031202, end: 20031211

REACTIONS (5)
  - ALANINE AMINOTRANSFERASE INCREASED [None]
  - FEBRILE NEUTROPENIA [None]
  - CONSTIPATION [None]
  - PANCREATITIS ACUTE [None]
  - ASPARTATE AMINOTRANSFERASE INCREASED [None]
